FAERS Safety Report 7255679-6 (Version None)
Quarter: 2011Q1

REPORT INFORMATION
  Report Type: 
  Country: None (occurrence: None)
  Receive Date: 20110129
  Receipt Date: 20100630
  Transmission Date: 20110831
  Serious: No
  Sender: FDA-Public Use
  Company Number: PR-ABBOTT-10P-131-0651803-00

PATIENT
  Sex: Female
  Weight: 72.64 kg

DRUGS (2)
  1. CYMBALTA [Concomitant]
     Indication: FIBROMYALGIA
     Route: 048
  2. HUMIRA [Suspect]
     Indication: RHEUMATOID ARTHRITIS
     Dosage: 1 PEN
     Route: 058
     Dates: start: 20080101

REACTIONS (3)
  - INJECTION SITE PRURITUS [None]
  - INJECTION SITE INFLAMMATION [None]
  - INJECTION SITE ERYTHEMA [None]
